FAERS Safety Report 5028251-6 (Version None)
Quarter: 2006Q2

REPORT INFORMATION
  Report Type: 
  Country: None (occurrence: None)
  Receive Date: 20060612
  Receipt Date: 20050817
  Transmission Date: 20061013
  Serious: Yes (Other)
  Sender: FDA-Public Use
  Company Number: CHNY2005GB02534

PATIENT
  Age: 64 Year
  Sex: Female

DRUGS (3)
  1. NICOTINELL TS 30 (NCH)(NICOTINE) TRANS-THERAPEUTIC-SYSTEM [Suspect]
     Indication: SMOKING CESSATION THERAPY
     Dosage: SEE IMAGE
     Route: 062
     Dates: start: 20050601, end: 20050705
  2. NICOTINELL TS 30 (NCH)(NICOTINE) TRANS-THERAPEUTIC-SYSTEM [Suspect]
     Indication: SMOKING CESSATION THERAPY
     Dosage: SEE IMAGE
     Route: 062
     Dates: start: 20050706, end: 20050801
  3. NICOTINELL TS 30 (NCH)(NICOTINE) TRANS-THERAPEUTIC-SYSTEM [Suspect]
     Indication: SMOKING CESSATION THERAPY
     Dosage: SEE IMAGE
     Route: 062
     Dates: start: 20050802

REACTIONS (4)
  - MUSCLE SPASMS [None]
  - MYALGIA [None]
  - SLEEP DISORDER [None]
  - TENDON INJURY [None]
